FAERS Safety Report 12647384 (Version 2)
Quarter: 2016Q3

REPORT INFORMATION
  Report Type: Spontaneous
  Country: CH (occurrence: CH)
  Receive Date: 20160812
  Receipt Date: 20160812
  Transmission Date: 20161109
  Serious: Yes (Other)
  Sender: FDA-Public Use
  Company Number: PHHY2016CH107975

PATIENT
  Age: 0 Day
  Sex: Female
  Weight: 2.44 kg

DRUGS (23)
  1. EPIRUBICIN [Suspect]
     Active Substance: EPIRUBICIN
     Dosage: MATERNAL DOSE: 90 MG/M2, UNK
     Route: 064
     Dates: start: 20151207, end: 20151207
  2. TAVEGYL [Suspect]
     Active Substance: CLEMASTINE FUMARATE
     Indication: FOETAL EXPOSURE DURING PREGNANCY
     Dosage: MATERNAL DOSE: 2 MG, QD
     Route: 064
     Dates: start: 20160121, end: 20160121
  3. CYCLOPHOSPHAMIDE. [Suspect]
     Active Substance: CYCLOPHOSPHAMIDE
     Dosage: MATERNAL DOSE: 600 MG/M2, UNK
     Route: 064
     Dates: start: 20151207, end: 20151207
  4. ZANTAC [Suspect]
     Active Substance: RANITIDINE HYDROCHLORIDE
     Indication: FOETAL EXPOSURE DURING PREGNANCY
     Dosage: MATERNAL DOSE: 50 MG, QD
     Route: 064
     Dates: start: 20160121, end: 20160121
  5. EPIRUBICIN [Suspect]
     Active Substance: EPIRUBICIN
     Indication: FOETAL EXPOSURE DURING PREGNANCY
     Dosage: MATERNAL DOSE: 90 MG/M2, UNK
     Route: 064
     Dates: start: 20151027, end: 20151027
  6. EPIRUBICIN [Suspect]
     Active Substance: EPIRUBICIN
     Dosage: MATERNAL DOSE: 90 MG/M2, UNK
     Route: 064
     Dates: start: 20151228, end: 20151228
  7. ALOXI [Suspect]
     Active Substance: PALONOSETRON HYDROCHLORIDE
     Dosage: MATERNAL DOSE: 0.25 MG, UNK
     Route: 064
     Dates: start: 20151207, end: 20151207
  8. MEPHAMESONE [Suspect]
     Active Substance: DEXAMETHASONE
     Indication: FOETAL EXPOSURE DURING PREGNANCY
     Dosage: MATERNAL DOSE: 8 MG, QD
     Route: 064
     Dates: start: 20160121, end: 20160121
  9. EPIRUBICIN [Suspect]
     Active Substance: EPIRUBICIN
     Dosage: MATERNAL DOSE: 90 MG/M2, UNK
     Route: 064
     Dates: start: 20151116, end: 20151116
  10. CYCLOPHOSPHAMIDE. [Suspect]
     Active Substance: CYCLOPHOSPHAMIDE
     Dosage: MATERNAL DOSE: 600 MG/M2, UNK
     Route: 064
     Dates: start: 20151116, end: 20151116
  11. ALOXI [Suspect]
     Active Substance: PALONOSETRON HYDROCHLORIDE
     Dosage: MATERNAL DOSE: 0.25 MG, UNK
     Route: 064
     Dates: start: 20151116, end: 20151116
  12. ALOXI [Suspect]
     Active Substance: PALONOSETRON HYDROCHLORIDE
     Dosage: MATERNAL DOSE: 0.25 MG, UNK
     Route: 064
     Dates: start: 20151228, end: 20151228
  13. EMEND [Suspect]
     Active Substance: APREPITANT
     Dosage: MATERNAL DOSE: 125 MG ON DAY 1, 80 MG ON D2 AND D3
     Route: 064
     Dates: start: 20151116, end: 20151118
  14. ZOFRAN [Suspect]
     Active Substance: ONDANSETRON HYDROCHLORIDE
     Indication: FOETAL EXPOSURE DURING PREGNANCY
     Dosage: MATERNAL DOSE: 8 MG, QD
     Route: 064
     Dates: start: 20160121, end: 20160121
  15. PACLITAXEL. [Suspect]
     Active Substance: PACLITAXEL
     Indication: FOETAL EXPOSURE DURING PREGNANCY
     Dosage: MATERNAL DOSE: 80 MG/M2, UNK
     Route: 064
     Dates: start: 20160121, end: 20160121
  16. CYCLOPHOSPHAMIDE. [Suspect]
     Active Substance: CYCLOPHOSPHAMIDE
     Indication: FOETAL EXPOSURE DURING PREGNANCY
     Dosage: MATERNAL DOSE: 600 MG/M2, UNK
     Route: 064
     Dates: start: 20151027, end: 20151027
  17. SOLU-MEDROL [Suspect]
     Active Substance: METHYLPREDNISOLONE SODIUM SUCCINATE
     Dosage: MATERNAL DOSE: 62.5 MG, UNK
     Route: 064
     Dates: start: 20151228, end: 20151228
  18. ALOXI [Suspect]
     Active Substance: PALONOSETRON HYDROCHLORIDE
     Indication: FOETAL EXPOSURE DURING PREGNANCY
     Dosage: MATERNAL DOSE: 0.25 MG, UNK
     Route: 064
     Dates: start: 20151027, end: 20151027
  19. SOLU-MEDROL [Suspect]
     Active Substance: METHYLPREDNISOLONE SODIUM SUCCINATE
     Indication: FOETAL EXPOSURE DURING PREGNANCY
     Dosage: MATERNAL DOSE: 62.5 MG, UNK
     Route: 064
     Dates: start: 20151027, end: 20151027
  20. SOLU-MEDROL [Suspect]
     Active Substance: METHYLPREDNISOLONE SODIUM SUCCINATE
     Dosage: MATERNAL DOSE: 62.5 MG, UNK
     Route: 064
     Dates: start: 20151116, end: 20151116
  21. SOLU-MEDROL [Suspect]
     Active Substance: METHYLPREDNISOLONE SODIUM SUCCINATE
     Dosage: MATERNAL DOSE: 62.5 MG, UNK
     Route: 064
     Dates: start: 20151207, end: 20151207
  22. CYCLOPHOSPHAMIDE. [Suspect]
     Active Substance: CYCLOPHOSPHAMIDE
     Dosage: MATERNAL DOSE: 600 MG/M2, UNK
     Route: 064
     Dates: start: 20151228, end: 20151228
  23. EMEND [Suspect]
     Active Substance: APREPITANT
     Indication: FOETAL EXPOSURE DURING PREGNANCY
     Dosage: MATERNAL DOSE: 125 MG ON DAY 1, 80 MG ON D2 AND D3
     Route: 064
     Dates: start: 20151027

REACTIONS (1)
  - Premature baby [Unknown]

NARRATIVE: CASE EVENT DATE: 20160215
